FAERS Safety Report 24693754 (Version 6)
Quarter: 2024Q4

REPORT INFORMATION
  Report Type: Report from Study
  Country: PT (occurrence: PT)
  Receive Date: 20241204
  Receipt Date: 20241223
  Transmission Date: 20250115
  Serious: Yes (Other)
  Sender: ABBVIE
  Company Number: PT-ABBVIE-6026234

PATIENT
  Age: 68 Year
  Sex: Female

DRUGS (8)
  1. CARBIDOPA\LEVODOPA [Suspect]
     Active Substance: CARBIDOPA\LEVODOPA
     Indication: Parkinson^s disease
     Dosage: 240 MG + 12 MG, LOAD0.9;HIGH0.37;BASE0.28;EXTRA0.15
     Route: 058
     Dates: start: 20241125, end: 20241126
  2. CARBIDOPA\LEVODOPA [Suspect]
     Active Substance: CARBIDOPA\LEVODOPA
     Dosage: 240 MG + 12 MG, LOAD0.9;HIG0.37;BAS0.28;LOW:0.22;EXT0.15
     Route: 058
     Dates: start: 20241126, end: 20241129
  3. CARBIDOPA\LEVODOPA [Suspect]
     Active Substance: CARBIDOPA\LEVODOPA
     Dosage: 240 MG + 12 MG, LOAD0.9;HIG0.4;BAS0.32;LOW:0.22;EXT0.15
     Route: 058
     Dates: start: 20241129, end: 20241130
  4. CARBIDOPA\LEVODOPA [Suspect]
     Active Substance: CARBIDOPA\LEVODOPA
     Dosage: 240 MG + 12 MG, LOAD0.9;HIG0.42;BAS0.37;LOW:0.25;EXT0.25
     Route: 058
     Dates: start: 20241201, end: 20241204
  5. CARBIDOPA\LEVODOPA [Suspect]
     Active Substance: CARBIDOPA\LEVODOPA
     Dosage: 240 MG + 12 MG, LOAD0.9;HIG0.45;BAS0.4;LOW:0.27;EXT0.25
     Route: 058
     Dates: start: 20241130, end: 20241201
  6. CARBIDOPA\LEVODOPA [Suspect]
     Active Substance: CARBIDOPA\LEVODOPA
     Dosage: 240 MG + 12 MG, LOAD0.9;HIG0.42;BAS0.37;LOW:0.25;EXT0.15
     Route: 058
     Dates: start: 20241204, end: 20241204
  7. CARBIDOPA\LEVODOPA [Suspect]
     Active Substance: CARBIDOPA\LEVODOPA
     Dosage: 240 MG + 12 MG, LO0.9;HI0.42;BA0.37;LO:0.25;EX0.15 (16H)
     Route: 058
     Dates: start: 20241204
  8. CLOZAPINE [Concomitant]
     Active Substance: CLOZAPINE
     Indication: Product used for unknown indication
     Dosage: + 1/2 TABLET
     Dates: start: 20241204, end: 20241204

REACTIONS (17)
  - Feeding disorder [Recovering/Resolving]
  - Aggression [Recovered/Resolved]
  - Agitation [Recovered/Resolved]
  - On and off phenomenon [Recovering/Resolving]
  - Musculoskeletal stiffness [Recovered/Resolved]
  - Tremor [Recovered/Resolved]
  - Confusional state [Recovering/Resolving]
  - Agitation [Recovered/Resolved]
  - Freezing phenomenon [Recovering/Resolving]
  - Therapeutic product effect incomplete [Unknown]
  - Agitation [Recovered/Resolved]
  - Aggression [Recovering/Resolving]
  - Constipation [Recovering/Resolving]
  - Weight decreased [Recovering/Resolving]
  - On and off phenomenon [Recovered/Resolved]
  - Off label use [Not Recovered/Not Resolved]
  - Fall [Recovered/Resolved]

NARRATIVE: CASE EVENT DATE: 20241125
